FAERS Safety Report 19751340 (Version 1)
Quarter: 2021Q3

REPORT INFORMATION
  Report Type: Spontaneous
  Country: US (occurrence: US)
  Receive Date: 20210826
  Receipt Date: 20210826
  Transmission Date: 20211014
  Serious: No
  Sender: FDA-Public Use
  Company Number: US-HETERO-HET2021US01639

PATIENT

DRUGS (1)
  1. LEVETIRACETAM. [Suspect]
     Active Substance: LEVETIRACETAM
     Indication: ENCEPHALITIS
     Dosage: 1500 MG, BID
     Route: 048
     Dates: start: 20210729

REACTIONS (2)
  - Product administration error [Unknown]
  - Accidental overdose [Unknown]

NARRATIVE: CASE EVENT DATE: 20210816
